FAERS Safety Report 25648850 (Version 1)
Quarter: 2025Q3

REPORT INFORMATION
  Report Type: Spontaneous
  Country: EU (occurrence: EU)
  Receive Date: 20250806
  Receipt Date: 20250806
  Transmission Date: 20251021
  Serious: Yes (Hospitalization)
  Sender: MYLAN
  Company Number: EU-MYLANLABS-2025M1065668

PATIENT
  Age: 27 Year
  Sex: Female

DRUGS (20)
  1. SERTRALINE [Suspect]
     Active Substance: SERTRALINE HYDROCHLORIDE
     Indication: Major depression
  2. SERTRALINE [Suspect]
     Active Substance: SERTRALINE HYDROCHLORIDE
     Route: 065
  3. SERTRALINE [Suspect]
     Active Substance: SERTRALINE HYDROCHLORIDE
     Route: 065
  4. SERTRALINE [Suspect]
     Active Substance: SERTRALINE HYDROCHLORIDE
  5. FLUOXETINE [Suspect]
     Active Substance: FLUOXETINE HYDROCHLORIDE
     Indication: Major depression
  6. FLUOXETINE [Suspect]
     Active Substance: FLUOXETINE HYDROCHLORIDE
     Route: 065
  7. FLUOXETINE [Suspect]
     Active Substance: FLUOXETINE HYDROCHLORIDE
     Route: 065
  8. FLUOXETINE [Suspect]
     Active Substance: FLUOXETINE HYDROCHLORIDE
  9. FLUVOXAMINE [Suspect]
     Active Substance: FLUVOXAMINE
     Indication: Major depression
  10. FLUVOXAMINE [Suspect]
     Active Substance: FLUVOXAMINE
     Route: 065
  11. FLUVOXAMINE [Suspect]
     Active Substance: FLUVOXAMINE
     Route: 065
  12. FLUVOXAMINE [Suspect]
     Active Substance: FLUVOXAMINE
  13. CLOMIPRAMINE [Suspect]
     Active Substance: CLOMIPRAMINE
     Indication: Major depression
  14. CLOMIPRAMINE [Suspect]
     Active Substance: CLOMIPRAMINE
     Route: 065
  15. CLOMIPRAMINE [Suspect]
     Active Substance: CLOMIPRAMINE
     Route: 065
  16. CLOMIPRAMINE [Suspect]
     Active Substance: CLOMIPRAMINE
  17. HALOPERIDOL [Suspect]
     Active Substance: HALOPERIDOL
     Indication: Major depression
  18. HALOPERIDOL [Suspect]
     Active Substance: HALOPERIDOL
     Route: 065
  19. HALOPERIDOL [Suspect]
     Active Substance: HALOPERIDOL
     Route: 065
  20. HALOPERIDOL [Suspect]
     Active Substance: HALOPERIDOL

REACTIONS (1)
  - Drug ineffective [Unknown]
